FAERS Safety Report 10201224 (Version 2)
Quarter: 2014Q3

REPORT INFORMATION
  Report Type: Spontaneous
  Country: US (occurrence: US)
  Receive Date: 20140528
  Receipt Date: 20140818
  Transmission Date: 20150326
  Serious: Yes (Hospitalization, Other)
  Sender: FDA-Public Use
  Company Number: US-BAYER-2014-077718

PATIENT
  Age: 70 Year
  Sex: Male

DRUGS (2)
  1. XOFIGO [Suspect]
     Active Substance: RADIUM RA-223 DICHLORIDE
     Indication: PROSTATE CANCER STAGE IV
     Dosage: UNK
     Dates: start: 20140328, end: 20140328
  2. XOFIGO [Suspect]
     Active Substance: RADIUM RA-223 DICHLORIDE
     Indication: PROSTATE CANCER STAGE IV
     Dosage: UNK
     Dates: start: 20140505, end: 20140505

REACTIONS (8)
  - Dyspnoea [None]
  - Nausea [None]
  - Fatigue [None]
  - Nausea [None]
  - Weight decreased [None]
  - Chest pain [None]
  - Anaemia [None]
  - Hypotension [None]

NARRATIVE: CASE EVENT DATE: 20140505
